FAERS Safety Report 21062273 (Version 2)
Quarter: 2022Q3

REPORT INFORMATION
  Report Type: Spontaneous
  Country: US (occurrence: US)
  Receive Date: 20220711
  Receipt Date: 20220716
  Transmission Date: 20221026
  Serious: Yes (Hospitalization)
  Sender: FDA-Public Use
  Company Number: US-drreddys-LIT/USA/22/0151933

PATIENT
  Age: 33 Year
  Sex: Male

DRUGS (8)
  1. DECITABINE [Suspect]
     Active Substance: DECITABINE
     Indication: Myeloid leukaemia
     Dosage: HAD BEEN RECEIVING DECITABINE AND VENETOCLAX 10 DAYS
  2. LEVOFLOXACIN [Suspect]
     Active Substance: LEVOFLOXACIN
     Indication: Sinusitis fungal
  3. VENETOCLAX [Suspect]
     Active Substance: VENETOCLAX
     Indication: Myeloid leukaemia
     Dosage: HAD BEEN RECEIVING DECITABINE AND VENETOCLAX 10 DAYS
  4. ACYCLOVIR [Suspect]
     Active Substance: ACYCLOVIR
     Indication: Prophylaxis
  5. ACYCLOVIR [Suspect]
     Active Substance: ACYCLOVIR
     Indication: Sinusitis fungal
  6. ISAVUCONAZONIUM [Suspect]
     Active Substance: ISAVUCONAZONIUM
     Indication: Sinusitis fungal
  7. AMPHOTERICIN B [Suspect]
     Active Substance: AMPHOTERICIN B
     Indication: Sinusitis fungal
  8. VORICONAZOLE [Concomitant]
     Active Substance: VORICONAZOLE
     Indication: Prophylaxis

REACTIONS (2)
  - Sinusitis fungal [Unknown]
  - Febrile neutropenia [Not Recovered/Not Resolved]
